FAERS Safety Report 6025459-8 (Version None)
Quarter: 2008Q4

REPORT INFORMATION
  Report Type: 
  Country: None (occurrence: None)
  Receive Date: 20081229
  Receipt Date: 20081229
  Transmission Date: 20090506
  Serious: No
  Sender: FDA-Public Use
  Company Number: None

PATIENT
  Age: 50 Year
  Sex: Female
  Weight: 79.3795 kg

DRUGS (1)
  1. AMBIEN [Suspect]
     Indication: INSOMNIA
     Dosage: 12.5 MG QHS PO
     Route: 048
     Dates: start: 20070110, end: 20081222

REACTIONS (2)
  - IMPAIRED WORK ABILITY [None]
  - MEMORY IMPAIRMENT [None]
